FAERS Safety Report 7261808-0 (Version None)
Quarter: 2011Q1

REPORT INFORMATION
  Report Type: 
  Country: None (occurrence: None)
  Receive Date: 20110130
  Receipt Date: 20101130
  Transmission Date: 20110831
  Serious: No
  Sender: FDA-Public Use
  Company Number: US-ABBOTT-10P-163-0688675-00

PATIENT
  Age: 25 Year
  Sex: Female

DRUGS (5)
  1. BIRTH CONTROL [Concomitant]
     Indication: CONTRACEPTION
  2. METHOTREXATE [Concomitant]
     Indication: PRODUCT USED FOR UNKNOWN INDICATION
     Dosage: WEEKLY
  3. MULTIVITAMIN [Concomitant]
     Indication: PRODUCT USED FOR UNKNOWN INDICATION
  4. AMITRIPTYLINE HCL [Concomitant]
     Indication: PRODUCT USED FOR UNKNOWN INDICATION
     Dosage: DAILY AS NEEDED
  5. HUMIRA [Suspect]
     Indication: CROHN'S DISEASE
     Dates: start: 20100201

REACTIONS (1)
  - INJECTION SITE PAIN [None]
